FAERS Safety Report 4591939-5 (Version None)
Quarter: 2005Q1

REPORT INFORMATION
  Report Type: 
  Country: None (occurrence: None)
  Receive Date: 20050222
  Receipt Date: 20050121
  Transmission Date: 20050727
  Serious: Yes (Other)
  Sender: FDA-Public Use
  Company Number: 2004097688

PATIENT
  Sex: Female
  Weight: 48.9885 kg

DRUGS (8)
  1. CELEBREX [Suspect]
     Indication: OSTEOARTHRITIS
     Dosage: 200 MG (200 MG, 1 IN 1 D), ORAL
     Route: 048
     Dates: start: 20030601
  2. ACETAMINOPHEN [Concomitant]
  3. CARISOPRODOL [Concomitant]
  4. RABEPRAZOLE SODIUM [Concomitant]
  5. PROPRANOLOL [Concomitant]
  6. ALPRAZOLAM [Concomitant]
  7. CODEINE PHOSPHATE AND ACETAMINOPHEN [Concomitant]
  8. CYCLOBENZAPINRE HYDROCHLORIDE (CYCLOBENZAPRINE HYDROCHLORIDE) [Concomitant]

REACTIONS (10)
  - AMNESIA [None]
  - CONCUSSION [None]
  - CONTUSION [None]
  - DRUG INEFFECTIVE [None]
  - FACE INJURY [None]
  - HAEMATOMA [None]
  - NECK PAIN [None]
  - POST-TRAUMATIC STRESS DISORDER [None]
  - ROAD TRAFFIC ACCIDENT [None]
  - SINUSITIS [None]
